FAERS Safety Report 9911845 (Version 2)
Quarter: 2014Q1

REPORT INFORMATION
  Report Type: Spontaneous
  Country: US (occurrence: US)
  Receive Date: 20140219
  Receipt Date: 20140219
  Transmission Date: 20141002
  Serious: No
  Sender: FDA-Public Use
  Company Number: US-MYLANLABS-2013S1007837

PATIENT
  Age: 75 Year
  Sex: Female

DRUGS (1)
  1. EPIPEN [Suspect]
     Dosage: 0.3ML, AS NEEDED

REACTIONS (2)
  - Accidental exposure to product [Recovering/Resolving]
  - Injection site pallor [Recovering/Resolving]
